FAERS Safety Report 7794934-8 (Version None)
Quarter: 2011Q4

REPORT INFORMATION
  Report Type: 
  Country: None (occurrence: None)
  Receive Date: 20111004
  Receipt Date: 20110922
  Transmission Date: 20120403
  Serious: Yes (Hospitalization)
  Sender: FDA-Public Use
  Company Number: US-PFIZER INC-2011215724

PATIENT
  Sex: Female
  Weight: 79.5 kg

DRUGS (14)
  1. NERATINIB [Suspect]
     Indication: BREAST CANCER
     Dosage: 240 MG, 1X/DAY
     Route: 048
     Dates: start: 20110224, end: 20110518
  2. CYTOXAN [Suspect]
     Indication: BREAST CANCER
     Dosage: 1152 MG, Q2W
     Route: 042
     Dates: start: 20110601, end: 20110713
  3. ATIVAN [Concomitant]
     Dosage: 1 MG, AS NEEDED
     Route: 048
     Dates: start: 20110518, end: 20110721
  4. ACETAMINOPHEN [Concomitant]
     Dosage: 500 MG, AS NEEDED
     Route: 048
     Dates: start: 20110716, end: 20110719
  5. PACLITAXEL [Suspect]
     Indication: BREAST CANCER
     Dosage: 153 MG, WEEKLY
     Route: 042
     Dates: start: 20110224, end: 20110512
  6. ZOFRAN [Concomitant]
     Dosage: 8 MG, ONCE PRIOR TO EACH AC
     Route: 042
     Dates: start: 20110601, end: 20110713
  7. ADRIAMYCIN PFS [Suspect]
     Indication: BREAST CANCER
     Dosage: 115 MG, Q2W
     Route: 042
     Dates: start: 20110601, end: 20110713
  8. DECADRON [Concomitant]
     Dosage: 10 MG, ONCE PRIOR TO EACH AC
     Route: 042
     Dates: start: 20110601, end: 20110713
  9. ZOFRAN [Concomitant]
     Dosage: 8 MG, AS NEEDED
     Route: 048
     Dates: start: 20110716, end: 20110719
  10. EMEND [Concomitant]
     Dosage: 125 MG/80 MG, ONCE ON D1, D2, D3 AFTER EACH AC
     Route: 048
     Dates: start: 20110518, end: 20110721
  11. DECADRON [Concomitant]
     Dosage: 8 MG, ONCE ON D2, D3 AFTER EACH AC, AS NEEDED
     Route: 048
     Dates: start: 20110519, end: 20110721
  12. COMPAZINE [Concomitant]
     Dosage: 10 MG, AS NEEDED
     Route: 048
     Dates: start: 20110518, end: 20110721
  13. EMEND [Concomitant]
     Dosage: 80 MG, ON DAYS 2 AND 3 OF CHEMO, AS NEEDED
     Route: 048
     Dates: start: 20110518, end: 20110702
  14. NEULASTA [Concomitant]
     Dosage: 6 MG, ONCE ON D2 AFTER EACH AC
     Route: 058
     Dates: start: 20110602, end: 20110714

REACTIONS (1)
  - FEBRILE NEUTROPENIA [None]
